FAERS Safety Report 7119608-8 (Version None)
Quarter: 2010Q4

REPORT INFORMATION
  Report Type: 
  Country: None (occurrence: None)
  Receive Date: 20101123
  Receipt Date: 20101116
  Transmission Date: 20110411
  Serious: Yes (Other)
  Sender: FDA-Public Use
  Company Number: IT-ABBOTT-10P-083-0686504-00

PATIENT
  Sex: Female

DRUGS (2)
  1. CLARITHROMYCIN [Suspect]
     Indication: PNEUMONIA
     Dosage: 1 GRAM DAILY
     Route: 048
     Dates: start: 20100624, end: 20100625
  2. ROCEPHIN [Suspect]
     Indication: PNEUMONIA
     Dosage: 1 GRAM DAILY
     Route: 030
     Dates: start: 20100623, end: 20100625

REACTIONS (3)
  - COUGH [None]
  - PHARYNGEAL OEDEMA [None]
  - URTICARIA [None]
